FAERS Safety Report 25218569 (Version 2)
Quarter: 2025Q2

REPORT INFORMATION
  Report Type: Report from Study
  Country: US (occurrence: US)
  Receive Date: 20250421
  Receipt Date: 20250424
  Transmission Date: 20250717
  Serious: No
  Sender: MERCK SHARP & DOHME LLC
  Company Number: US-009507513-2273846

PATIENT
  Sex: Female
  Weight: 55.792 kg

DRUGS (41)
  1. WINREVAIR [Suspect]
     Active Substance: SOTATERCEPT-CSRK
  2. WINREVAIR [Suspect]
     Active Substance: SOTATERCEPT-CSRK
  3. WINREVAIR [Suspect]
     Active Substance: SOTATERCEPT-CSRK
  4. WINREVAIR [Suspect]
     Active Substance: SOTATERCEPT-CSRK
  5. WINREVAIR [Suspect]
     Active Substance: SOTATERCEPT-CSRK
     Indication: Pulmonary arterial hypertension
     Dosage: 0.9 ML Q3W
     Route: 058
     Dates: start: 20250314
  6. WINREVAIR [Suspect]
     Active Substance: SOTATERCEPT-CSRK
  7. WINREVAIR [Suspect]
     Active Substance: SOTATERCEPT-CSRK
  8. WINREVAIR [Suspect]
     Active Substance: SOTATERCEPT-CSRK
  9. ORENITRAM [Suspect]
     Active Substance: TREPROSTINIL
     Indication: Pulmonary arterial hypertension
     Route: 048
     Dates: start: 20250221
  10. ORENITRAM [Suspect]
     Active Substance: TREPROSTINIL
     Indication: Pulmonary arterial hypertension
     Route: 048
     Dates: start: 2025
  11. ORENITRAM [Suspect]
     Active Substance: TREPROSTINIL
     Indication: Pulmonary arterial hypertension
     Route: 048
     Dates: start: 2025
  12. ORENITRAM [Suspect]
     Active Substance: TREPROSTINIL
     Indication: Pulmonary arterial hypertension
     Route: 048
     Dates: start: 2025
  13. DOCUSATE SODIUM [Concomitant]
     Active Substance: DOCUSATE SODIUM
  14. VITAMINS [Concomitant]
     Active Substance: VITAMINS
  15. METHOCARBAMOL [Concomitant]
     Active Substance: METHOCARBAMOL
  16. Hair skin nails [Concomitant]
  17. PROTONIX [Concomitant]
     Active Substance: PANTOPRAZOLE SODIUM
  18. OPSUMIT [Concomitant]
     Active Substance: MACITENTAN
  19. LASIX [Concomitant]
     Active Substance: FUROSEMIDE
  20. SUCRALFATE [Concomitant]
     Active Substance: SUCRALFATE
  21. TADALAFIL [Concomitant]
     Active Substance: TADALAFIL
  22. ELIQUIS [Concomitant]
     Active Substance: APIXABAN
  23. POTASSIUM CHLORIDE [Concomitant]
     Active Substance: POTASSIUM CHLORIDE
  24. SILDENAFIL CITRATE [Concomitant]
     Active Substance: SILDENAFIL CITRATE
  25. LETAIRIS [Concomitant]
     Active Substance: AMBRISENTAN
  26. FAMOTIDINE [Concomitant]
     Active Substance: FAMOTIDINE
  27. SPIRONOLACTONE [Concomitant]
     Active Substance: SPIRONOLACTONE
  28. HYDROXYZINE HYDROCHLORIDE [Concomitant]
     Active Substance: HYDROXYZINE HYDROCHLORIDE
  29. MIDODRINE HYDROCHLORIDE [Concomitant]
     Active Substance: MIDODRINE HYDROCHLORIDE
  30. PERIDEX [Concomitant]
     Active Substance: CHLORHEXIDINE GLUCONATE
  31. FERROUS SULFATE [Concomitant]
     Active Substance: FERROUS SULFATE
  32. TORSEMIDE [Concomitant]
     Active Substance: TORSEMIDE
  33. LACTULOSE [Concomitant]
     Active Substance: LACTULOSE
  34. AZELASTINE HYDROCHLORIDE [Concomitant]
     Active Substance: AZELASTINE HYDROCHLORIDE
  35. ONDANSETRON HYDROCHLORIDE [Concomitant]
     Active Substance: ONDANSETRON HYDROCHLORIDE
  36. ORPHENADRINE CITRATE [Concomitant]
     Active Substance: ORPHENADRINE CITRATE
  37. NAPROXEN [Concomitant]
     Active Substance: NAPROXEN
  38. NARCAN [Concomitant]
     Active Substance: NALOXONE HYDROCHLORIDE
  39. PANTOPRAZOLE SODIUM [Concomitant]
     Active Substance: PANTOPRAZOLE SODIUM
  40. CHLORHEXIDINE GLUCONATE [Concomitant]
     Active Substance: CHLORHEXIDINE GLUCONATE
  41. AMBRISENTAN [Concomitant]
     Active Substance: AMBRISENTAN

REACTIONS (10)
  - Flushing [Unknown]
  - Muscle spasms [Unknown]
  - Hypoacusis [Unknown]
  - Ill-defined disorder [Unknown]
  - Headache [Unknown]
  - Diarrhoea [Unknown]
  - Decreased appetite [Unknown]
  - Abdominal distension [Unknown]
  - Visual impairment [Unknown]
  - Insomnia [Unknown]

NARRATIVE: CASE EVENT DATE: 20250101
